FAERS Safety Report 9888362 (Version 1)
Quarter: 2014Q1

REPORT INFORMATION
  Report Type: Spontaneous
  Country: FR (occurrence: FR)
  Receive Date: 20140211
  Receipt Date: 20140211
  Transmission Date: 20141002
  Serious: Yes (Hospitalization, Other)
  Sender: FDA-Public Use
  Company Number: FR-ABBVIE-14P-056-1199996-00

PATIENT
  Age: 77 Year
  Sex: Female

DRUGS (4)
  1. ZECLAR [Suspect]
     Indication: BRONCHITIS
     Route: 048
     Dates: start: 20130104, end: 20130108
  2. KARDEGIC [Concomitant]
     Indication: PRODUCT USED FOR UNKNOWN INDICATION
     Route: 048
  3. CRESTOR [Concomitant]
     Indication: DYSLIPIDAEMIA
     Dosage: IN EVENING
     Route: 048
  4. COVERSYL [Concomitant]
     Indication: PRODUCT USED FOR UNKNOWN INDICATION
     Dosage: IN MORNING
     Route: 048

REACTIONS (15)
  - Blood creatine phosphokinase increased [Recovered/Resolved]
  - Proteinuria [Recovered/Resolved]
  - Pyrexia [Recovered/Resolved]
  - Rash maculo-papular [Recovered/Resolved]
  - Hepatitis [Recovered/Resolved]
  - Confusional state [Recovered/Resolved]
  - Disorientation [Recovered/Resolved]
  - Cholestasis [Recovered/Resolved]
  - General physical health deterioration [Recovered/Resolved]
  - Inflammation [Recovered/Resolved]
  - Leukocytosis [Recovered/Resolved]
  - Toxic skin eruption [Recovered/Resolved]
  - Hypoalbuminaemia [Recovered/Resolved]
  - Escherichia urinary tract infection [Recovered/Resolved]
  - Haematuria [Recovered/Resolved]
